FAERS Safety Report 20059428 (Version 1)
Quarter: 2021Q4

REPORT INFORMATION
  Report Type: Spontaneous
  Country: FR (occurrence: FR)
  Receive Date: 20211111
  Receipt Date: 20211111
  Transmission Date: 20220303
  Serious: Yes (Hospitalization, Disabling, Congenital Anomaly, Other)
  Sender: FDA-Public Use
  Company Number: FR-ABBVIE-21K-056-4156464-00

PATIENT
  Sex: Female

DRUGS (3)
  1. VALPROATE SODIUM [Suspect]
     Active Substance: VALPROATE SODIUM
     Indication: Maternal exposure timing unspecified
     Route: 064
  2. KETOPROFEN [Suspect]
     Active Substance: KETOPROFEN
     Indication: Maternal exposure timing unspecified
     Route: 064
  3. PHENOBARBITAL [Suspect]
     Active Substance: PHENOBARBITAL
     Indication: Maternal exposure timing unspecified
     Route: 064

REACTIONS (39)
  - Pyrexia [Unknown]
  - Intellectual disability [Unknown]
  - Talipes [Unknown]
  - Autism spectrum disorder [Unknown]
  - Knee deformity [Unknown]
  - Dysmorphism [Unknown]
  - Visual impairment [Unknown]
  - Language disorder [Unknown]
  - Scoliosis [Unknown]
  - Disturbance in attention [Unknown]
  - Loss of personal independence in daily activities [Unknown]
  - Negativism [Unknown]
  - Plagiocephaly [Recovering/Resolving]
  - Dacryostenosis congenital [Unknown]
  - Behaviour disorder [Unknown]
  - Cognitive disorder [Unknown]
  - Educational problem [Unknown]
  - Visual field defect [Unknown]
  - Personal relationship issue [Unknown]
  - Hypoacusis [Unknown]
  - Motor developmental delay [Unknown]
  - Learning disorder [Unknown]
  - Dysgraphia [Unknown]
  - Gastrointestinal disorder [Unknown]
  - Strabismus [Unknown]
  - Social problem [Unknown]
  - Executive dysfunction [Unknown]
  - Neurodevelopmental disorder [Unknown]
  - Speech disorder developmental [Unknown]
  - Strabismus [Unknown]
  - Aphasia [Unknown]
  - Vomiting [Unknown]
  - Conjunctivitis [Unknown]
  - Nasopharyngitis [Unknown]
  - Nasopharyngitis [Unknown]
  - Pharyngeal disorder [Unknown]
  - Nasal disorder [Unknown]
  - Ear disorder [Unknown]
  - Foetal exposure during pregnancy [Unknown]
